FAERS Safety Report 23848698 (Version 1)
Quarter: 2024Q2

REPORT INFORMATION
  Report Type: Other
  Country: IN (occurrence: None)
  Receive Date: 20240513
  Receipt Date: 20240513
  Transmission Date: 20240716
  Serious: Yes (Hospitalization)
  Sender: FDA-Public Use
  Company Number: IN-ROCHE-3282662

PATIENT
  Age: 51 Year
  Sex: Male

DRUGS (1)
  1. TECENTRIQ [Suspect]
     Active Substance: ATEZOLIZUMAB
     Indication: Small cell carcinoma
     Route: 042
     Dates: start: 20221116

REACTIONS (5)
  - Jaundice [Unknown]
  - Tooth extraction [Unknown]
  - Dental caries [Unknown]
  - Hepatitis B DNA increased [Unknown]
  - Off label use [Unknown]
